FAERS Safety Report 8643118 (Version 4)
Quarter: 2012Q4

REPORT INFORMATION
  Report Type: 
  Country: JP (occurrence: JP)
  Receive Date: 20120629
  Receipt Date: 20121128
  Transmission Date: 20130627
  Serious: Yes (Death, Other)
  Sender: FDA-Public Use
  Company Number: JP-PFIZER INC-2012130799

PATIENT
  Age: 68 Year
  Sex: Male
  Weight: 37 kg

DRUGS (7)
  1. ZYVOX [Suspect]
     Indication: PNEUMONIA MRSA
     Dosage: 600 mg, 2x/day
     Route: 041
     Dates: start: 20120507, end: 20120518
  2. ZYVOX [Suspect]
     Dosage: 600 mg, 2x/day
     Route: 041
     Dates: start: 20120526, end: 20120601
  3. TEICOPLANIN [Suspect]
     Indication: PNEUMONIA MRSA
     Dosage: 400 mg, 1x/day
     Route: 041
     Dates: start: 20120521, end: 20120523
  4. AMPICILLIN SODIUM\SULBACTAM SODIUM [Suspect]
     Indication: PNEUMONIA
     Dosage: 1500 mg, 3x/day
     Route: 041
     Dates: start: 20120514, end: 20120517
  5. MEROPEN [Suspect]
     Indication: PNEUMONIA
     Dosage: 500 mg, 3x/day
     Route: 041
     Dates: start: 20120416, end: 20120426
  6. MEROPEN [Suspect]
     Dosage: 500 mg, 3x/day
     Dates: start: 20120517, end: 20120530
  7. PAZUFLOXACIN MESILATE [Suspect]
     Indication: PNEUMONIA
     Dosage: 1000 mg, 2x/day
     Route: 041
     Dates: start: 20120418, end: 20120427

REACTIONS (4)
  - Platelet count decreased [Recovered/Resolved]
  - Hyponatraemia [Recovered/Resolved]
  - Pneumonia [Fatal]
  - Hepatic function abnormal [Fatal]
